FAERS Safety Report 5303084-1 (Version None)
Quarter: 2007Q2

REPORT INFORMATION
  Report Type: 
  Country: None (occurrence: None)
  Receive Date: 20070420
  Receipt Date: 20070409
  Transmission Date: 20071010
  Serious: Yes (Hospitalization)
  Sender: FDA-Public Use
  Company Number: US-AMGEN-US217263

PATIENT
  Sex: Male
  Weight: 74.5 kg

DRUGS (13)
  1. PANITUMUMAB [Suspect]
     Indication: COLORECTAL CANCER
     Route: 042
     Dates: start: 20070207
  2. LEUCOVORIN CALCIUM [Suspect]
     Route: 065
  3. FLUOROURACIL [Suspect]
     Route: 065
  4. IRINOTECAN HCL [Suspect]
     Route: 065
  5. NEULASTA [Concomitant]
     Route: 065
     Dates: start: 20070322
  6. FISH OIL [Concomitant]
     Route: 048
     Dates: start: 20060101
  7. VITAMIN CAP [Concomitant]
     Route: 048
     Dates: start: 20020101
  8. ASCORBIC ACID [Concomitant]
     Route: 048
     Dates: start: 20060101
  9. IMODIUM [Concomitant]
     Route: 048
     Dates: start: 20070129
  10. MEGACE [Concomitant]
     Route: 048
     Dates: start: 20070221
  11. DOCUSATE SODIUM [Concomitant]
     Route: 048
     Dates: start: 20070212, end: 20070221
  12. SENOKOT [Concomitant]
     Route: 048
     Dates: start: 20070212, end: 20070221
  13. MILK OF MAGNESIA [Concomitant]
     Route: 048
     Dates: start: 20070212, end: 20070221

REACTIONS (3)
  - DEHYDRATION [None]
  - MUCOSAL INFLAMMATION [None]
  - PANCYTOPENIA [None]
